FAERS Safety Report 13854227 (Version 2)
Quarter: 2017Q3

REPORT INFORMATION
  Report Type: Spontaneous
  Country: US (occurrence: US)
  Receive Date: 20170809
  Receipt Date: 20170905
  Transmission Date: 20171127
  Serious: No
  Sender: FDA-Public Use
  Company Number: US-ACTELION-A-NJ2017-157757

PATIENT
  Age: 53 Year
  Sex: Female

DRUGS (1)
  1. VALCHLOR [Suspect]
     Active Substance: MECHLORETHAMINE
     Indication: MYCOSIS FUNGOIDES
     Dosage: UNK
     Route: 061
     Dates: start: 20170719

REACTIONS (5)
  - Application site haemorrhage [Unknown]
  - Skin lesion [Unknown]
  - Blister [Unknown]
  - Application site discharge [Unknown]
  - Haemorrhage [Unknown]
